FAERS Safety Report 19405808 (Version 1)
Quarter: 2021Q2

REPORT INFORMATION
  Report Type: Spontaneous
  Country: GB (occurrence: GB)
  Receive Date: 20210611
  Receipt Date: 20210611
  Transmission Date: 20210717
  Serious: Yes (Other)
  Sender: FDA-Public Use
  Company Number: GB-MYLANLABS-2021M1033518

PATIENT
  Age: 5 Decade
  Sex: Female

DRUGS (4)
  1. AZATHIOPRINE. [Concomitant]
     Active Substance: AZATHIOPRINE
     Indication: PEMPHIGOID
     Dosage: UNK
     Route: 065
  2. MYCOPHENOLATE MOFETIL. [Suspect]
     Active Substance: MYCOPHENOLATE MOFETIL
     Indication: PEMPHIGOID
     Dosage: UNK
     Route: 065
  3. PREDNISOLONE. [Suspect]
     Active Substance: PREDNISOLONE
     Indication: PEMPHIGOID
     Dosage: HIGH?DOSE
     Route: 048
  4. METHYLPREDNISOLONE. [Suspect]
     Active Substance: METHYLPREDNISOLONE
     Indication: PEMPHIGOID
     Dosage: THREE COURSES OF PULSED INTRAVENOUS
     Route: 042

REACTIONS (1)
  - Drug ineffective [Unknown]
